FAERS Safety Report 6318811-4 (Version None)
Quarter: 2009Q3

REPORT INFORMATION
  Report Type: 
  Country: None (occurrence: None)
  Receive Date: 20090821
  Receipt Date: 20090810
  Transmission Date: 20100115
  Serious: Yes (Hospitalization)
  Sender: FDA-Public Use
  Company Number: DE-ELI_LILLY_AND_COMPANY-DE200908002070

PATIENT
  Sex: Male

DRUGS (6)
  1. EFFIENT [Suspect]
     Dosage: 10 MG, DAILY (1/D)
     Route: 048
     Dates: start: 20090728
  2. PANTOPRAZOL [Concomitant]
     Dosage: 20 MG, DAILY (1/D)
     Route: 065
  3. SIMVASTATIN [Concomitant]
     Dosage: 40 MG, DAILY (1/D)
     Route: 065
  4. RAMIPRIL [Concomitant]
     Dosage: 2.5 MG, DAILY (1/D)
     Route: 065
  5. BISOPROLOL [Concomitant]
     Dosage: 2.5 MG, DAILY (1/D)
     Route: 065
  6. ASPIRIN [Concomitant]
     Dosage: 100 MG, DAILY (1/D)
     Route: 065

REACTIONS (1)
  - THROMBOSIS IN DEVICE [None]
